FAERS Safety Report 7944538-9 (Version None)
Quarter: 2011Q4

REPORT INFORMATION
  Report Type: 
  Country: None (occurrence: None)
  Receive Date: 20111122
  Receipt Date: 20110812
  Transmission Date: 20120403
  Serious: Yes (Other)
  Sender: FDA-Public Use
  Company Number: PHHY2011US69646

PATIENT
  Age: 38 Year
  Sex: Female

DRUGS (7)
  1. DULERA (FORMOTEROL FUMARATE, MOMETASONE FUROATE) [Concomitant]
  2. CLONAZEPAM [Concomitant]
  3. BACLOFEN [Concomitant]
  4. GILENYA [Suspect]
     Indication: RELAPSING-REMITTING MULTIPLE SCLEROSIS
     Dosage: 0.5 MG, QD, ORAL
     Route: 048
     Dates: start: 20110301
  5. CETRIZINE (CETIRIZINE HYDROCHLORIDE) [Concomitant]
  6. BACTRIM DS [Suspect]
  7. ALBUTEROL [Concomitant]

REACTIONS (4)
  - DYSPNOEA [None]
  - COUGH [None]
  - PNEUMONIA [None]
  - PYREXIA [None]
